FAERS Safety Report 10197881 (Version 1)
Quarter: 2014Q2

REPORT INFORMATION
  Report Type: Spontaneous
  Country: US (occurrence: US)
  Receive Date: 20140527
  Receipt Date: 20140527
  Transmission Date: 20141212
  Serious: No
  Sender: FDA-Public Use
  Company Number: US-ASTRAZENECA-2014SE34424

PATIENT
  Sex: Female

DRUGS (8)
  1. METOPROLOL (UNSPECIFIED) [Suspect]
     Route: 065
  2. CRESTOR [Suspect]
     Route: 048
  3. LANTUS SOLO STAR [Concomitant]
  4. TRICOR [Concomitant]
  5. HYZAAR [Concomitant]
  6. METFORMIN [Concomitant]
  7. ELAVIL [Concomitant]
  8. LEVOTHYROXIN [Concomitant]

REACTIONS (2)
  - Type 2 diabetes mellitus [Not Recovered/Not Resolved]
  - Intentional product misuse [Unknown]
